FAERS Safety Report 7573750-6 (Version None)
Quarter: 2011Q2

REPORT INFORMATION
  Report Type: 
  Country: None (occurrence: None)
  Receive Date: 20110627
  Receipt Date: 20110620
  Transmission Date: 20111010
  Serious: Yes (Death, Other)
  Sender: FDA-Public Use
  Company Number: JP-ROCHE-783515

PATIENT
  Sex: Female

DRUGS (3)
  1. CISPLATIN [Suspect]
     Indication: LUNG ADENOCARCINOMA
     Dosage: DOSAGE IS UNCERTAIN.
     Route: 041
     Dates: start: 20110301
  2. DOCETAXEL [Suspect]
     Indication: LUNG ADENOCARCINOMA
     Dosage: DOSAGE IS UNCERTAIN.
     Route: 041
     Dates: start: 20110301
  3. BEVACIZUMAB [Suspect]
     Indication: LUNG ADENOCARCINOMA
     Route: 041
     Dates: start: 20110301, end: 20110510

REACTIONS (5)
  - NEUTROPHIL COUNT DECREASED [None]
  - CARDIO-RESPIRATORY ARREST [None]
  - HAEMOPTYSIS [None]
  - ASPHYXIA [None]
  - PULMONARY ALVEOLAR HAEMORRHAGE [None]
